FAERS Safety Report 16815726 (Version 1)
Quarter: 2019Q3

REPORT INFORMATION
  Report Type: Spontaneous
  Country: IT (occurrence: IT)
  Receive Date: 20190917
  Receipt Date: 20190917
  Transmission Date: 20191005
  Serious: Yes (Other)
  Sender: FDA-Public Use
  Company Number: IT-TEVA-2019-IT-1106994

PATIENT
  Age: 83 Year
  Sex: Male

DRUGS (1)
  1. EPIRUBICINA (EPIRUBICIN) [Suspect]
     Active Substance: EPIRUBICIN
     Indication: BLADDER NEOPLASM
     Route: 043
     Dates: start: 20190806, end: 20190820

REACTIONS (3)
  - Bladder irritation [Not Recovered/Not Resolved]
  - Pain [Not Recovered/Not Resolved]
  - Haematuria [Not Recovered/Not Resolved]

NARRATIVE: CASE EVENT DATE: 20190813
